FAERS Safety Report 25776741 (Version 1)
Quarter: 2025Q3

REPORT INFORMATION
  Report Type: Spontaneous
  Country: US (occurrence: US)
  Receive Date: 20250909
  Receipt Date: 20250909
  Transmission Date: 20251021
  Serious: No
  Sender: DOMPE FARMACEUTICI
  Company Number: US-FARMAPROD-202503-0912

PATIENT
  Sex: Female

DRUGS (16)
  1. OXERVATE [Suspect]
     Active Substance: CENEGERMIN-BKBJ
     Indication: Neurotrophic keratopathy
     Route: 047
     Dates: start: 20230104
  2. OXERVATE [Suspect]
     Active Substance: CENEGERMIN-BKBJ
     Route: 047
     Dates: start: 20250312
  3. SYSTANE (HYPROMELLOSE 2910 (4000 MPA.S)) [Concomitant]
     Active Substance: HYPROMELLOSE 2910 (4000 MPA.S)
  4. RESTASIS [Concomitant]
     Active Substance: CYCLOSPORINE
  5. ALOE VERA LEAF [Concomitant]
     Active Substance: ALOE VERA LEAF
  6. DIETARY SUPPLEMENT [Concomitant]
     Active Substance: DIETARY SUPPLEMENT
  7. OMEGA 3-6-9 COMPLEX [Concomitant]
  8. PHENAZOPYRIDINE HCL [Concomitant]
     Active Substance: PHENAZOPYRIDINE HYDROCHLORIDE
  9. ZETIA [Concomitant]
     Active Substance: EZETIMIBE
  10. FAMOTIDINE [Concomitant]
     Active Substance: FAMOTIDINE
  11. LORAZEPAM [Concomitant]
     Active Substance: LORAZEPAM
  12. OXYCODONE HYDROCHLORIDE [Concomitant]
     Active Substance: OXYCODONE HYDROCHLORIDE
  13. IPRATROPIUM BROMIDE [Concomitant]
     Active Substance: IPRATROPIUM BROMIDE
  14. FENTANYL [Concomitant]
     Active Substance: FENTANYL
  15. GABAPENTIN [Concomitant]
     Active Substance: GABAPENTIN
  16. CLOPIDOGREL [Concomitant]
     Active Substance: CLOPIDOGREL BISULFATE

REACTIONS (1)
  - Eye pain [Unknown]
